FAERS Safety Report 5085798-4 (Version None)
Quarter: 2006Q3

REPORT INFORMATION
  Report Type: 
  Country: None (occurrence: None)
  Receive Date: 20060817
  Receipt Date: 20060804
  Transmission Date: 20061208
  Serious: Yes (Other)
  Sender: FDA-Public Use
  Company Number: 2006096124

PATIENT
  Age: 62 Year
  Sex: Female

DRUGS (3)
  1. GEODON [Suspect]
     Indication: BIPOLAR DISORDER
     Dosage: 140 MG (2 IN 1 D)
     Dates: start: 20060629
  2. ZYPREXA [Concomitant]
  3. HALDOL [Concomitant]

REACTIONS (5)
  - BACTERIA URINE IDENTIFIED [None]
  - BLOOD BICARBONATE DECREASED [None]
  - NEUTROPHIL PERCENTAGE DECREASED [None]
  - SYNCOPE [None]
  - WHITE BLOOD CELLS URINE POSITIVE [None]
